FAERS Safety Report 14242485 (Version 1)
Quarter: 2017Q4

REPORT INFORMATION
  Report Type: Spontaneous
  Country: US (occurrence: None)
  Receive Date: 20171130
  Receipt Date: 20171130
  Transmission Date: 20180321
  Serious: Yes (Hospitalization)
  Sender: FDA-Public Use
  Company Number: None

PATIENT
  Age: 65 Year
  Sex: Female

DRUGS (12)
  1. MULTIVIT [Concomitant]
     Active Substance: VITAMINS
  2. TRAMADOL. [Concomitant]
     Active Substance: TRAMADOL
  3. NORTRIPTYLIN [Concomitant]
     Active Substance: NORTRIPTYLINE
  4. LEVOTHYROXIN [Concomitant]
     Active Substance: LEVOTHYROXINE
  5. ORENCIA [Suspect]
     Active Substance: ABATACEPT
     Indication: RHEUMATOID ARTHRITIS
     Route: 058
     Dates: start: 20140918
  6. ASPIRIN. [Concomitant]
     Active Substance: ASPIRIN
  7. BIOTIN [Concomitant]
     Active Substance: BIOTIN
  8. CYMBALTA [Concomitant]
     Active Substance: DULOXETINE HYDROCHLORIDE
  9. VITAMIN D3 [Concomitant]
     Active Substance: CHOLECALCIFEROL
  10. PROTONIX [Concomitant]
     Active Substance: PANTOPRAZOLE SODIUM
  11. CALCIUM [Concomitant]
     Active Substance: CALCIUM
  12. PLAQUENIL [Concomitant]
     Active Substance: HYDROXYCHLOROQUINE SULFATE

REACTIONS (1)
  - Surgery [None]

NARRATIVE: CASE EVENT DATE: 201711
